FAERS Safety Report 7379168-3 (Version None)
Quarter: 2011Q1

REPORT INFORMATION
  Report Type: 
  Country: None (occurrence: None)
  Receive Date: 20110328
  Receipt Date: 20110322
  Transmission Date: 20110831
  Serious: Yes (Death, Hospitalization, Other)
  Sender: FDA-Public Use
  Company Number: PHEH2006US15238

PATIENT
  Sex: Male

DRUGS (85)
  1. ZOMETA [Suspect]
  2. DEXAMETHASONE [Concomitant]
  3. CELEXA [Concomitant]
  4. SINGULAIR [Concomitant]
  5. DIFLUCAN [Concomitant]
  6. RAPAMYCIN [Concomitant]
  7. LOPERAMIDE [Concomitant]
  8. POTASSIUM CHLORIDE [Concomitant]
  9. RELAFEN [Concomitant]
  10. NITROSTAT [Concomitant]
  11. ELAVIL [Concomitant]
     Dosage: 25 MG, QD
  12. MS CONTIN [Concomitant]
  13. LEVAQUIN [Concomitant]
  14. COTRIM [Concomitant]
  15. RAPAMUNE [Concomitant]
  16. MULTI-VITAMINS [Concomitant]
  17. PREVACID [Concomitant]
  18. VITAMIN E [Concomitant]
  19. THALIDOMIDE [Concomitant]
  20. CITALOPRAM HYDROBROMIDE [Concomitant]
  21. ALBUTEROL SULFATE AND IPRATROPIUM BROMIDE [Concomitant]
  22. FLEXERIL [Concomitant]
  23. LYRICA [Concomitant]
  24. NADOLOL [Concomitant]
  25. VITAMIN B-12 [Concomitant]
  26. COZAAR [Concomitant]
  27. LANSOPRAZOLE [Concomitant]
  28. ATIVAN [Concomitant]
  29. MAGNESIUM SULFATE [Concomitant]
  30. ERYTHROMYCIN [Concomitant]
  31. VELCADE [Concomitant]
  32. LASIX [Concomitant]
     Dosage: 20 MG, QD
  33. PREDNISONE [Concomitant]
  34. BACTRIM DS [Concomitant]
  35. OMEPRAZOLE [Concomitant]
  36. CELEBREX [Concomitant]
  37. ARANESP [Concomitant]
  38. SODIUM PHOSPHATE [Concomitant]
  39. CEFEPIME [Concomitant]
  40. MEPERGAN [Concomitant]
  41. TOBRAMYCIN [Concomitant]
  42. LEXAPRO [Concomitant]
  43. IMMUNOGLOBULINS [Concomitant]
  44. LOVENOX [Concomitant]
  45. CYCLOPHOSPHAMIDE [Concomitant]
  46. VIOXX [Concomitant]
  47. VALTREX [Concomitant]
  48. ADRIAMYCIN PFS [Concomitant]
  49. OXYCONTIN [Concomitant]
  50. SULFAMETHOXAZOLE AND TRIMETHOPRIM [Concomitant]
  51. FLUTAMIDE [Concomitant]
  52. REVLIMID [Concomitant]
  53. K-DUR [Concomitant]
     Dosage: 20 MEQ, QD
  54. NAPROSYN [Concomitant]
  55. MAG-OX [Concomitant]
  56. FAMVIR [Concomitant]
  57. SIMVASTATIN [Concomitant]
  58. BUSULFAN [Concomitant]
  59. ETOPOSIDE [Concomitant]
  60. LORTAB [Concomitant]
  61. COUMADIN [Concomitant]
  62. VANCOMYCIN [Concomitant]
  63. TORECAN [Concomitant]
  64. MYCELEX [Concomitant]
  65. DAPSONE [Concomitant]
  66. AREDIA [Suspect]
     Dosage: 90 MG, QW4
  67. CORGARD [Concomitant]
     Dosage: 20 MG, QD
  68. INTERFERON [Concomitant]
     Dosage: UNK
  69. DILANTIN [Concomitant]
     Route: 048
  70. INSULIN [Concomitant]
  71. LEVOFLOXACIN [Concomitant]
  72. RABEPRAZOLE SODIUM [Concomitant]
  73. PROCRIT                            /00909301/ [Concomitant]
  74. PRILOSEC [Concomitant]
     Dosage: 20 MG, QD
  75. ADVIL LIQUI-GELS [Concomitant]
  76. PERCOCET [Concomitant]
  77. NEURONTIN [Concomitant]
  78. MAGNESIUM OXIDE [Concomitant]
  79. AMOXICILLIN [Concomitant]
  80. GUAIFENESIN [Concomitant]
  81. POTASSIUM PHOSPHATE DIBASIC [Concomitant]
  82. MELPHALAN [Concomitant]
  83. ALKERAN [Concomitant]
  84. PHENERGAN [Concomitant]
  85. CALCIUM CARBONATE [Concomitant]

REACTIONS (95)
  - MULTI-ORGAN FAILURE [None]
  - CARDIO-RESPIRATORY ARREST [None]
  - DECREASED INTEREST [None]
  - ANAEMIA [None]
  - BRONCHITIS [None]
  - DIABETES MELLITUS [None]
  - PNEUMONIA VIRAL [None]
  - RENAL CYST [None]
  - METASTASES TO BONE [None]
  - DENTAL CARIES [None]
  - ASTHMA [None]
  - LIVER FUNCTION TEST ABNORMAL [None]
  - SINUSITIS [None]
  - COLON ADENOMA [None]
  - TENDONITIS [None]
  - ARTERIOSCLEROSIS [None]
  - HAEMATURIA [None]
  - NEUROPATHY PERIPHERAL [None]
  - LOCALISED INFECTION [None]
  - HYPERGLYCAEMIA [None]
  - SWELLING FACE [None]
  - BLOOD CREATINE PHOSPHOKINASE INCREASED [None]
  - NEUTROPENIA [None]
  - SERUM FERRITIN INCREASED [None]
  - AMNESIA [None]
  - INCREASED TENDENCY TO BRUISE [None]
  - HYPOTENSION [None]
  - GENERAL PHYSICAL HEALTH DETERIORATION [None]
  - CEREBRAL ISCHAEMIA [None]
  - OSTEOSCLEROSIS [None]
  - DYSPHEMIA [None]
  - TREMOR [None]
  - HYPERLIPIDAEMIA [None]
  - MYELOMA RECURRENCE [None]
  - OTITIS MEDIA [None]
  - DYSPNOEA EXERTIONAL [None]
  - BLOOD CREATINE PHOSPHOKINASE MB INCREASED [None]
  - INTERVERTEBRAL DISC PROTRUSION [None]
  - HEPATIC ENCEPHALOPATHY [None]
  - ATRIOVENTRICULAR BLOCK FIRST DEGREE [None]
  - ELECTROCARDIOGRAM QT PROLONGED [None]
  - PALLOR [None]
  - LUNG INFILTRATION [None]
  - DIVERTICULUM INTESTINAL [None]
  - GINGIVITIS [None]
  - MUSCULOSKELETAL PAIN [None]
  - VENTRICULAR EXTRASYSTOLES [None]
  - HYPOCALCAEMIA [None]
  - PANCREATIC DISORDER [None]
  - RENAL FAILURE [None]
  - PULMONARY OEDEMA [None]
  - OSTEOARTHRITIS [None]
  - PROSTATOMEGALY [None]
  - SPINAL COMPRESSION FRACTURE [None]
  - ONYCHOMYCOSIS [None]
  - APHTHOUS STOMATITIS [None]
  - PROTEINURIA [None]
  - MYOPATHY [None]
  - GASTROINTESTINAL HAEMORRHAGE [None]
  - PANCYTOPENIA [None]
  - MASS [None]
  - CHRONIC OBSTRUCTIVE PULMONARY DISEASE [None]
  - UPPER RESPIRATORY TRACT INFECTION [None]
  - NEURODERMATITIS [None]
  - BACK PAIN [None]
  - RHABDOMYOLYSIS [None]
  - HYPOKALAEMIA [None]
  - ORAL CANDIDIASIS [None]
  - AGRANULOCYTOSIS [None]
  - RIB FRACTURE [None]
  - ATRIAL FIBRILLATION [None]
  - COMA [None]
  - OSTEONECROSIS OF JAW [None]
  - BLOOD GLUCOSE FLUCTUATION [None]
  - OSTEOPOROSIS [None]
  - CATARACT [None]
  - PROSTATE CANCER [None]
  - BONE DISORDER [None]
  - LIPOATROPHY [None]
  - EJECTION FRACTION DECREASED [None]
  - HYPOVOLAEMIA [None]
  - CONSTIPATION [None]
  - DENERVATION ATROPHY [None]
  - AORTIC ANEURYSM [None]
  - BLOOD PHOSPHORUS DECREASED [None]
  - HYPONATRAEMIA [None]
  - MITRAL VALVE INCOMPETENCE [None]
  - MENTAL STATUS CHANGES [None]
  - PAIN [None]
  - ANXIETY [None]
  - NEPHROLITHIASIS [None]
  - PNEUMONIA [None]
  - CELLULITIS [None]
  - DEHYDRATION [None]
  - HYPOMAGNESAEMIA [None]
